FAERS Safety Report 7525355-0 (Version None)
Quarter: 2011Q2

REPORT INFORMATION
  Report Type: 
  Country: None (occurrence: None)
  Receive Date: 20110602
  Receipt Date: 20110602
  Transmission Date: 20111010
  Serious: Yes (Other)
  Sender: FDA-Public Use
  Company Number: None

PATIENT
  Age: 47 Year
  Sex: Female

DRUGS (2)
  1. DURAGESIC-100 [Suspect]
     Indication: FIBROMYALGIA
     Dosage: CHANGE EVENT 72 HOURS
  2. DURAGESIC-100 [Suspect]
     Indication: NECK PAIN
     Dosage: CHANGE EVENT 72 HOURS

REACTIONS (4)
  - NAUSEA [None]
  - VOMITING [None]
  - PRODUCT SUBSTITUTION ISSUE [None]
  - DRUG INEFFECTIVE [None]
